FAERS Safety Report 10224176 (Version 1)
Quarter: 2014Q2

REPORT INFORMATION
  Report Type: Spontaneous
  Country: IN (occurrence: None)
  Receive Date: 20140605
  Receipt Date: 20140605
  Transmission Date: 20141212
  Serious: Yes (Hospitalization)
  Sender: FDA-Public Use
  Company Number: AUR-APL-2014-06050

PATIENT
  Age: 17 Year
  Sex: Female

DRUGS (1)
  1. RAMIPRIL (RAMIPRIL) [Suspect]
     Indication: PRODUCT USED FOR UNKNOWN INDICATION

REACTIONS (13)
  - Suicide attempt [None]
  - Intentional overdose [None]
  - Toxicity to various agents [None]
  - Blood pressure decreased [None]
  - Metabolic acidosis [None]
  - Lactic acidosis [None]
  - Hyperkalaemia [None]
  - Left ventricular dysfunction [None]
  - Blood alkaline phosphatase increased [None]
  - International normalised ratio increased [None]
  - Renal failure acute [None]
  - Hepatic function abnormal [None]
  - Hypothermia [None]
